FAERS Safety Report 4711691-X (Version None)
Quarter: 2005Q2

REPORT INFORMATION
  Report Type: 
  Country: None (occurrence: None)
  Receive Date: 20050629
  Receipt Date: 20050425
  Transmission Date: 20051028
  Serious: No
  Sender: FDA-Public Use
  Company Number: 05P-163-0298749-00

PATIENT
  Age: 79 Year
  Sex: Female
  Weight: 72.5755 kg

DRUGS (6)
  1. HUMIRA [Suspect]
     Indication: RHEUMATOID ARTHRITIS
     Dosage: 40 MG, 1 IN 2 WK, SUBCUTANEOUS
     Route: 058
     Dates: start: 20050201
  2. LANSOPRAZOLE [Concomitant]
  3. HYDROXYCHLOROQUINE PHOSPHATE [Concomitant]
  4. METHOTREXATE SODIUM [Concomitant]
  5. ATORVASTATIN CALCIUM [Concomitant]
  6. SERTRALINE HYDROCHLORIDE [Concomitant]

REACTIONS (4)
  - ASTHENIA [None]
  - HAEMANGIOMA OF SKIN [None]
  - INJECTION SITE PRURITUS [None]
  - PULMONARY CONGESTION [None]
